FAERS Safety Report 5866488-4 (Version None)
Quarter: 2008Q3

REPORT INFORMATION
  Report Type: 
  Country: None (occurrence: None)
  Receive Date: 20080902
  Receipt Date: 20080902
  Transmission Date: 20090109
  Serious: Yes (Death, Other)
  Sender: FDA-Public Use
  Company Number: PHEH1996US10718

PATIENT
  Sex: Male
  Weight: 55.9 kg

DRUGS (2)
  1. NEORAL [Suspect]
     Route: 048
     Dates: start: 19951221, end: 19960512
  2. PREDNISONE TAB [Concomitant]
     Route: 065

REACTIONS (2)
  - LUNG NEOPLASM MALIGNANT [None]
  - NON-SMALL CELL LUNG CANCER [None]
